FAERS Safety Report 6584603-4 (Version None)
Quarter: 2010Q1

REPORT INFORMATION
  Report Type: 
  Country: None (occurrence: None)
  Receive Date: 20100213
  Receipt Date: 20100213
  Transmission Date: 20100710
  Serious: Yes (Other)
  Sender: FDA-Public Use
  Company Number: None

PATIENT
  Sex: Male
  Weight: 82.5547 kg

DRUGS (2)
  1. KEPPRA [Suspect]
     Indication: CONVULSION
     Dosage: 500 MG BID PO
     Route: 048
     Dates: start: 20070701, end: 20080214
  2. GEMFIBROZIL [Concomitant]

REACTIONS (2)
  - AUTOIMMUNE HEPATITIS [None]
  - IMPAIRED WORK ABILITY [None]
